FAERS Safety Report 5296022-1 (Version None)
Quarter: 2007Q2

REPORT INFORMATION
  Report Type: 
  Country: None (occurrence: None)
  Receive Date: 20070406
  Receipt Date: 20070326
  Transmission Date: 20071010
  Serious: Yes (Other)
  Sender: FDA-Public Use
  Company Number: 2007P1000162

PATIENT
  Age: 29 Year
  Sex: Male

DRUGS (1)
  1. NICARDIPINE HYDROCHLORIDE [Suspect]
     Indication: DRUG USE FOR UNKNOWN INDICATION
     Dosage: 9 MG; QH; IV
     Route: 042
     Dates: start: 20070301, end: 20070301

REACTIONS (1)
  - ILEUS [None]
